FAERS Safety Report 10387022 (Version 2)
Quarter: 2014Q3

REPORT INFORMATION
  Report Type: Spontaneous
  Country: US (occurrence: US)
  Receive Date: 20140815
  Receipt Date: 20140825
  Transmission Date: 20150326
  Serious: Yes (Death, Hospitalization, Other)
  Sender: FDA-Public Use
  Company Number: US-009507513-1408USA006224

PATIENT
  Age: 58 Year
  Sex: Male

DRUGS (3)
  1. TEMODAR [Suspect]
     Active Substance: TEMOZOLOMIDE
     Dosage: UNK
     Route: 048
     Dates: start: 20131023
  2. AVASTATIN (ATORVASTATIN CALCIUM) [Concomitant]
     Dosage: UNK
     Dates: start: 20131023
  3. TEMODAR [Suspect]
     Active Substance: TEMOZOLOMIDE
     Dosage: 390 MG DAILY FOR 5 DAYS EVERY 28 DAYS
     Route: 048
     Dates: start: 20130911, end: 20130925

REACTIONS (1)
  - Cerebrovascular accident [Fatal]

NARRATIVE: CASE EVENT DATE: 201407
